FAERS Safety Report 6342463-0 (Version None)
Quarter: 2009Q3

REPORT INFORMATION
  Report Type: 
  Country: None (occurrence: None)
  Receive Date: 20090908
  Receipt Date: 20040823
  Transmission Date: 20100115
  Serious: No
  Sender: FDA-Public Use
  Company Number: JP-ROCHE-356992

PATIENT
  Sex: Female
  Weight: 3.3 kg

DRUGS (1)
  1. TAMIFLU [Suspect]
     Dates: start: 20040119, end: 20040123

REACTIONS (2)
  - DRUG EXPOSURE DURING PREGNANCY [None]
  - LIVE BIRTH [None]
